FAERS Safety Report 7460968-6 (Version None)
Quarter: 2011Q2

REPORT INFORMATION
  Report Type: 
  Country: None (occurrence: None)
  Receive Date: 20110505
  Receipt Date: 20090326
  Transmission Date: 20111010
  Serious: Yes (Hospitalization)
  Sender: FDA-Public Use
  Company Number: CH-B.I. PHARMACEUTICALS,INC./RIDGEFIELD-2007-DE-04251DE

PATIENT
  Sex: Male
  Weight: 84 kg

DRUGS (2)
  1. NEVIRAPINE [Suspect]
     Dosage: 400 MG
     Route: 048
     Dates: start: 20070427
  2. NEVIRAPINE [Suspect]
     Indication: HIV INFECTION
     Dosage: 200 MG
     Route: 048
     Dates: start: 20070412, end: 20070426

REACTIONS (1)
  - CEREBROVASCULAR ACCIDENT [None]
